FAERS Safety Report 8326205-5 (Version None)
Quarter: 2012Q2

REPORT INFORMATION
  Report Type: 
  Country: None (occurrence: None)
  Receive Date: 20120501
  Receipt Date: 20100623
  Transmission Date: 20120825
  Serious: No
  Sender: FDA-Public Use
  Company Number: US-TEVA-2010003392

PATIENT
  Sex: Male

DRUGS (3)
  1. NUVIGIL [Suspect]
     Indication: NERVOUS SYSTEM DISORDER
  2. NUVIGIL [Suspect]
     Indication: CLUSTER HEADACHE
  3. NUVIGIL [Suspect]
     Indication: SOMNOLENCE
     Route: 048

REACTIONS (1)
  - DRUG INEFFECTIVE [None]
